FAERS Safety Report 22304006 (Version 2)
Quarter: 2023Q2

REPORT INFORMATION
  Report Type: Report from Study
  Country: EG (occurrence: EG)
  Receive Date: 20230510
  Receipt Date: 20230616
  Transmission Date: 20230721
  Serious: Yes (Other)
  Sender: FDA-Public Use
  Company Number: EG-002147023-NVSC2023EG103375

PATIENT
  Age: 47 Year
  Sex: Female

DRUGS (5)
  1. COSENTYX [Suspect]
     Active Substance: SECUKINUMAB
     Indication: Psoriatic arthropathy
     Dosage: 1 DOSAGE FORM, QW (ONE PEN ONCE PER WEEK FOR 4 WEEKS FOLLOWED BY ONE PEN MONTHLY)
     Route: 058
     Dates: start: 20230425
  2. COSENTYX [Suspect]
     Active Substance: SECUKINUMAB
     Indication: Psoriasis
  3. FOLIC ACID [Concomitant]
     Active Substance: FOLIC ACID
     Indication: Immunisation
     Dosage: 500 MG, QD (MID)
     Route: 048
     Dates: start: 202302
  4. LORNOXICAM [Concomitant]
     Active Substance: LORNOXICAM
     Indication: Analgesic therapy
     Dosage: 8 MG, QD (WHEN NEEDED)
     Route: 065
     Dates: start: 202304
  5. TIZANIDINE [Concomitant]
     Active Substance: TIZANIDINE
     Indication: Analgesic therapy
     Dosage: 2 MG, QD (WHEN NEEDED)
     Route: 048
     Dates: start: 202304

REACTIONS (6)
  - Illness [Not Recovered/Not Resolved]
  - Dysstasia [Not Recovered/Not Resolved]
  - Incorrect dose administered [Unknown]
  - Wrong technique in device usage process [Unknown]
  - Accidental exposure to product [Unknown]
  - Drug ineffective [Not Recovered/Not Resolved]

NARRATIVE: CASE EVENT DATE: 20230425
